FAERS Safety Report 9681208 (Version 1)
Quarter: 2013Q4

REPORT INFORMATION
  Report Type: Report from Study
  Country: FR (occurrence: FR)
  Receive Date: 20131111
  Receipt Date: 20131111
  Transmission Date: 20140711
  Serious: Yes (Other)
  Sender: FDA-Public Use
  Company Number: FR-SA-2013SA112861

PATIENT
  Age: 21 Year
  Sex: 0

DRUGS (1)
  1. LANTUS [Suspect]
     Indication: TYPE 1 DIABETES MELLITUS
     Route: 065

REACTIONS (3)
  - Coma [Unknown]
  - Ketoacidosis [Unknown]
  - Diabetes mellitus inadequate control [Unknown]
